FAERS Safety Report 7008500-5 (Version None)
Quarter: 2010Q3

REPORT INFORMATION
  Report Type: 
  Country: None (occurrence: None)
  Receive Date: 20100922
  Receipt Date: 20100820
  Transmission Date: 20110219
  Serious: No
  Sender: FDA-Public Use
  Company Number: US-PFIZER INC-2010065860

PATIENT
  Sex: Female
  Weight: 70.295 kg

DRUGS (18)
  1. TOVIAZ [Suspect]
     Indication: INCONTINENCE
     Dosage: 8 MG, DAILY
     Route: 048
     Dates: start: 20100501
  2. TOVIAZ [Suspect]
     Dosage: 8 MG, DAILY
     Route: 048
     Dates: start: 20100601, end: 20100813
  3. CYCLOSPORINE [Suspect]
     Indication: DRY EYE
     Dosage: UNK 2X/DAY
     Route: 047
  4. ASCORBIC ACID [Concomitant]
     Indication: ROSACEA
     Dosage: UNK DAILY
  5. VITAMIN D [Concomitant]
     Dosage: UNK DAILY
  6. VITAMIN E [Concomitant]
     Indication: HOT FLUSH
     Dosage: UNK DAILY
  7. CHROMIUM PICOLINATE [Concomitant]
     Dosage: UNK DAILY
  8. FISH OIL [Concomitant]
     Dosage: UNK DAILY
  9. MAGNESIUM [Concomitant]
     Indication: MUSCLE SPASMS
     Dosage: UNK DAILY
  10. CLARITIN [Concomitant]
     Indication: ALLERGY TO ANIMAL
     Dosage: 10 MG, DAILY
     Route: 048
  11. MONTELUKAST SODIUM [Concomitant]
     Indication: ALLERGY TO ANIMAL
     Dosage: 10 MG, DAILY IN THE MORNING
     Route: 048
  12. CALCIUM WITH VITAMIN D [Concomitant]
     Dosage: 600/400 MG, 2X/DAY
  13. CELEBREX [Concomitant]
     Dosage: 200 MG, DAILY IN THE MORNING
     Route: 048
  14. CELEXA [Concomitant]
     Dosage: 400 MG, DAILY IN THE MORNING
     Route: 048
  15. PRILOSEC [Concomitant]
     Indication: GASTROOESOPHAGEAL REFLUX DISEASE
     Dosage: 20 MG, DAILY IN THE MORNING
     Route: 048
  16. FOSAMAX PLUS D [Concomitant]
     Dosage: 70/2800 MG/IU, WEEKLY
     Route: 048
  17. NEURONTIN [Concomitant]
     Indication: HEADACHE
     Dosage: 200 MG, DAILY
     Route: 048
  18. NIZORAL [Concomitant]
     Indication: SKIN DISORDER
     Dosage: UNK MG, UNK

REACTIONS (6)
  - DRY EYE [None]
  - DRY MOUTH [None]
  - EYE DISCHARGE [None]
  - EYE IRRITATION [None]
  - INSOMNIA [None]
  - VISUAL IMPAIRMENT [None]
